FAERS Safety Report 9943040 (Version 1)
Quarter: 2014Q1

REPORT INFORMATION
  Report Type: Spontaneous
  Country: GB (occurrence: GB)
  Receive Date: 20140303
  Receipt Date: 20140303
  Transmission Date: 20141002
  Serious: Yes (Other)
  Sender: FDA-Public Use
  Company Number: GB-BAXTER-2014BAX009989

PATIENT
  Sex: Male

DRUGS (1)
  1. FEIBA IMMUNO FACTOR VIII INHIBITOR BYPASSING FRACTION HUMAN VAPOUR HEA [Suspect]
     Indication: HAEMORRHAGE
     Route: 065

REACTIONS (2)
  - Soft tissue haemorrhage [Unknown]
  - Muscle haemorrhage [Unknown]
